FAERS Safety Report 6567242-0 (Version None)
Quarter: 2010Q1

REPORT INFORMATION
  Report Type: 
  Country: None (occurrence: None)
  Receive Date: 20100128
  Receipt Date: 20100113
  Transmission Date: 20100710
  Serious: Yes (Death)
  Sender: FDA-Public Use
  Company Number: 2010AC000063

PATIENT
  Sex: Female

DRUGS (19)
  1. DIGOXIN [Suspect]
     Dosage: 0.125 MG;QD;PO
     Route: 048
  2. PLAVIX [Concomitant]
  3. ALBUTEROL [Concomitant]
  4. FUROSEMIDE [Concomitant]
  5. NORVASC [Concomitant]
  6. NAPROXEN [Concomitant]
  7. SINGULAIR [Concomitant]
  8. TUSSINZONE [Concomitant]
  9. PROTONIX [Concomitant]
  10. SUCRALFATE [Concomitant]
  11. LEVAQUIN [Concomitant]
  12. THEOPHYLLINE [Concomitant]
  13. CIPROFLOXACIN [Concomitant]
  14. PREDNISONE [Concomitant]
  15. AZITHROMYCIN [Concomitant]
  16. BENZONATE [Concomitant]
  17. LIDODERM [Concomitant]
  18. IPRATROPIUM [Concomitant]
  19. COREG [Concomitant]

REACTIONS (8)
  - ANXIETY [None]
  - BRONCHITIS [None]
  - CARDIAC FAILURE CONGESTIVE [None]
  - CHRONIC OBSTRUCTIVE PULMONARY DISEASE [None]
  - CONDITION AGGRAVATED [None]
  - ECONOMIC PROBLEM [None]
  - MULTIPLE INJURIES [None]
  - URINARY TRACT INFECTION [None]
